FAERS Safety Report 10015601 (Version 3)
Quarter: 2015Q2

REPORT INFORMATION
  Report Type: Spontaneous
  Country: US (occurrence: US)
  Receive Date: 20140317
  Receipt Date: 20150429
  Transmission Date: 20150821
  Serious: Yes (Hospitalization, Other)
  Sender: FDA-Public Use
  Company Number: US-BAYER-2014-039034

PATIENT
  Age: 23 Year
  Sex: Female
  Weight: 62 kg

DRUGS (2)
  1. MIRENA [Suspect]
     Active Substance: LEVONORGESTREL
     Indication: CONTRACEPTION
     Dosage: 20 MCG/24HR, CONT
     Route: 015
     Dates: start: 200711, end: 201211
  2. MIRENA [Suspect]
     Active Substance: LEVONORGESTREL
     Indication: CONTRACEPTION
     Dosage: 20 MCG/24HR, CONT
     Route: 015
     Dates: start: 201211, end: 20130110

REACTIONS (9)
  - Injury [None]
  - Abdominal pain lower [None]
  - Back pain [None]
  - Uterine perforation [None]
  - Genital haemorrhage [None]
  - Device issue [None]
  - Pain in extremity [None]
  - Uterine perforation [None]
  - Abortion spontaneous [None]

NARRATIVE: CASE EVENT DATE: 2012
